FAERS Safety Report 12953388 (Version 1)
Quarter: 2016Q4

REPORT INFORMATION
  Report Type: Spontaneous
  Country: US (occurrence: US)
  Receive Date: 20161117
  Receipt Date: 20161117
  Transmission Date: 20170207
  Serious: No
  Sender: FDA-Public Use
  Company Number: US-PFIZER INC-2016527950

PATIENT
  Age: 30 Year
  Sex: Female
  Weight: 70 kg

DRUGS (3)
  1. DIVALPROEX [Concomitant]
     Active Substance: DIVALPROEX SODIUM
     Indication: SCHIZOAFFECTIVE DISORDER BIPOLAR TYPE
     Dosage: 1000 MG, 1X/DAY (500 MG, 2 TABLETS)
     Route: 048
  2. ADVIL [Suspect]
     Active Substance: IBUPROFEN
     Indication: PAIN
     Dosage: 4 A DAY, TWO IN THE MORNING AND TWO AT NIGHT
     Route: 048
     Dates: start: 201611, end: 201611
  3. OLANZAPINE. [Concomitant]
     Active Substance: OLANZAPINE
     Indication: SCHIZOAFFECTIVE DISORDER BIPOLAR TYPE
     Dosage: 40 MG, (20 MG, 2 TABLETS)
     Route: 048

REACTIONS (3)
  - Drug ineffective [Unknown]
  - Spinal disorder [Unknown]
  - Musculoskeletal disorder [Unknown]
